FAERS Safety Report 7355786-3 (Version None)
Quarter: 2011Q1

REPORT INFORMATION
  Report Type: 
  Country: None (occurrence: None)
  Receive Date: 20110316
  Receipt Date: 20110308
  Transmission Date: 20110831
  Serious: Yes (Disabling, Other)
  Sender: FDA-Public Use
  Company Number: US-US-EMD SERONO, INC.-7022068

PATIENT
  Sex: Female

DRUGS (2)
  1. AMPYRA [Concomitant]
     Dates: start: 20101201
  2. REBIF [Suspect]
     Indication: MULTIPLE SCLEROSIS
     Route: 058
     Dates: start: 20091208

REACTIONS (7)
  - DILATATION VENTRICULAR [None]
  - INJECTION SITE ERYTHEMA [None]
  - HYPOTONIA [None]
  - VISUAL ACUITY REDUCED [None]
  - WEIGHT DECREASED [None]
  - BLINDNESS UNILATERAL [None]
  - INFLUENZA LIKE ILLNESS [None]
